FAERS Safety Report 9832465 (Version 1)
Quarter: 2014Q1

REPORT INFORMATION
  Report Type: Spontaneous
  Country: IT (occurrence: IT)
  Receive Date: 20140121
  Receipt Date: 20140121
  Transmission Date: 20141002
  Serious: Yes (Hospitalization)
  Sender: FDA-Public Use
  Company Number: IT-BAYER-2014-008097

PATIENT
  Age: 78 Year
  Sex: Female

DRUGS (2)
  1. ASPIRINA [Suspect]
     Dosage: DAILY DOSE 1 DF
     Route: 048
     Dates: start: 20140112, end: 20140112
  2. AMARYL [Concomitant]
     Dosage: DAILY DOSE 2 DF
     Route: 048

REACTIONS (5)
  - Dysphagia [Recovering/Resolving]
  - Erythema [Recovering/Resolving]
  - Face oedema [Recovering/Resolving]
  - Lip oedema [Recovering/Resolving]
  - Palatal oedema [Recovering/Resolving]
